FAERS Safety Report 24417025 (Version 1)
Quarter: 2024Q4

REPORT INFORMATION
  Report Type: Spontaneous
  Country: US (occurrence: US)
  Receive Date: 20241009
  Receipt Date: 20241009
  Transmission Date: 20250115
  Serious: Yes (Death)
  Sender: TEVA
  Company Number: US-TEVA-VS-3249741

PATIENT
  Age: 55 Year
  Sex: Female

DRUGS (2)
  1. AUSTEDO [Suspect]
     Active Substance: DEUTETRABENAZINE
     Indication: Huntington^s disease
     Dosage: 9 MG, 1 TABLET BY MOUTH TWICE DAILY + AUSTEDO 12 MG, 1 TABLET BY MOUTH TWICE DAILY FOR A TOTAL DA...
     Route: 048
  2. AUSTEDO [Suspect]
     Active Substance: DEUTETRABENAZINE
     Indication: Huntington^s disease
     Dosage: 9 MG, 1 TABLET BY MOUTH TWICE DAILY + AUSTEDO 12 MG, 1 TABLET BY MOUTH TWICE DAILY FOR A TOTAL DA...
     Route: 048

REACTIONS (1)
  - Death [Fatal]
